FAERS Safety Report 7243975-8 (Version None)
Quarter: 2011Q1

REPORT INFORMATION
  Report Type: 
  Country: None (occurrence: None)
  Receive Date: 20110125
  Receipt Date: 20110114
  Transmission Date: 20110831
  Serious: Yes (Hospitalization)
  Sender: FDA-Public Use
  Company Number: PHHY2011NL03375

PATIENT
  Sex: Male

DRUGS (8)
  1. OXYCONTIN [Concomitant]
  2. LYRICA [Concomitant]
  3. PERINDOPRIL [Concomitant]
  4. ZOMETA [Suspect]
     Dosage: 4 MG/5 ML, 1X PER 28 DAYS
     Dates: start: 20101122
  5. ZOMETA [Suspect]
     Dosage: 4 MG/5 ML, 1X PER 28 DAYS
     Dates: start: 20101216
  6. METOPROLOL [Concomitant]
  7. BICALUTAMIDE [Concomitant]
  8. ZOMETA [Suspect]
     Indication: PROSTATE CANCER METASTATIC
     Dosage: 4 MG/5 ML, 1X PER 28 DAYS
     Dates: start: 20100409

REACTIONS (2)
  - MALAISE [None]
  - BACTERIAL TEST POSITIVE [None]
